FAERS Safety Report 9758010 (Version 2)
Quarter: 2013Q4

REPORT INFORMATION
  Report Type: Spontaneous
  Country: US (occurrence: US)
  Receive Date: 20131216
  Receipt Date: 20131216
  Transmission Date: 20140711
  Serious: No
  Sender: FDA-Public Use
  Company Number: US-TEVA-415441USA

PATIENT
  Sex: Female

DRUGS (2)
  1. PARAGARD 380A [Suspect]
     Indication: CONTRACEPTION
     Route: 015
     Dates: start: 20130611, end: 20130618
  2. CLARITIN [Concomitant]
     Indication: SEASONAL ALLERGY

REACTIONS (1)
  - Device expulsion [Recovered/Resolved]
